FAERS Safety Report 5410197-2 (Version None)
Quarter: 2007Q3

REPORT INFORMATION
  Report Type: 
  Country: None (occurrence: None)
  Receive Date: 20070713
  Receipt Date: 20070417
  Transmission Date: 20080115
  Serious: No
  Sender: FDA-Public Use
  Company Number: 2007SP001382

PATIENT
  Age: 39 Year
  Sex: Male
  Weight: 120.2032 kg

DRUGS (4)
  1. LUNESTA [Suspect]
     Indication: INSOMNIA
     Dosage: 3 MG;HS;ORAL
     Route: 048
     Dates: start: 20070416
  2. ZOLOFT [Concomitant]
  3. LOPRESSOR [Concomitant]
  4. NEURONTIN [Concomitant]

REACTIONS (1)
  - DYSGEUSIA [None]
